FAERS Safety Report 11055346 (Version 3)
Quarter: 2015Q2

REPORT INFORMATION
  Report Type: Spontaneous
  Country: US (occurrence: US)
  Receive Date: 20150422
  Receipt Date: 20150526
  Transmission Date: 20150821
  Serious: No
  Sender: FDA-Public Use
  Company Number: US-LEO PHARMA-233774

PATIENT
  Age: 69 Year
  Sex: Female

DRUGS (2)
  1. PICATO [Suspect]
     Active Substance: INGENOL MEBUTATE
  2. PICATO [Suspect]
     Active Substance: INGENOL MEBUTATE
     Indication: ACTINIC KERATOSIS
     Route: 061
     Dates: start: 20150405, end: 20150405

REACTIONS (8)
  - Inappropriate schedule of drug administration [Unknown]
  - Drug administration error [Unknown]
  - Application site scab [Recovered/Resolved]
  - Application site erythema [Recovered/Resolved]
  - Application site exfoliation [Recovered/Resolved]
  - Incorrect drug administration duration [Unknown]
  - Application site pain [Recovered/Resolved]
  - Application site vesicles [Recovered/Resolved]

NARRATIVE: CASE EVENT DATE: 20150405
